FAERS Safety Report 18239112 (Version 2)
Quarter: 2020Q4

REPORT INFORMATION
  Report Type: Spontaneous
  Country: DE (occurrence: DE)
  Receive Date: 20200907
  Receipt Date: 20201117
  Transmission Date: 20210113
  Serious: Yes (Other)
  Sender: FDA-Public Use
  Company Number: DE-BRISTOL-MYERS SQUIBB COMPANY-BMS-2020-069696

PATIENT
  Age: 53 Year
  Sex: Male

DRUGS (1)
  1. NIVOLUMAB [Suspect]
     Active Substance: NIVOLUMAB
     Indication: MALIGNANT MELANOMA
     Dosage: 240 MILLIGRAM, Q2WK
     Route: 042
     Dates: start: 20190702

REACTIONS (6)
  - Facial paresis [Recovering/Resolving]
  - Acute kidney injury [Unknown]
  - Hypothyroidism [Unknown]
  - Pruritus [Unknown]
  - Skin discolouration [Unknown]
  - Blood disorder [Unknown]

NARRATIVE: CASE EVENT DATE: 202007
